FAERS Safety Report 16728896 (Version 1)
Quarter: 2019Q3

REPORT INFORMATION
  Report Type: Spontaneous
  Country: US (occurrence: US)
  Receive Date: 20190822
  Receipt Date: 20190822
  Transmission Date: 20191005
  Serious: No
  Sender: FDA-Public Use
  Company Number: US-MALLINCKRODT-T201803186

PATIENT
  Sex: Female

DRUGS (1)
  1. ROXICODONE [Suspect]
     Active Substance: OXYCODONE HYDROCHLORIDE
     Indication: PAIN
     Dosage: 30 MG, PRN
     Route: 048

REACTIONS (4)
  - Malaise [Unknown]
  - Drug ineffective [Unknown]
  - Urticaria [Unknown]
  - Nausea [Unknown]
